FAERS Safety Report 23084293 (Version 1)
Quarter: 2023Q4

REPORT INFORMATION
  Report Type: Spontaneous
  Country: US (occurrence: US)
  Receive Date: 20231019
  Receipt Date: 20231019
  Transmission Date: 20240110
  Serious: Yes (Hospitalization)
  Sender: FDA-Public Use
  Company Number: US-MYLANLABS-2023M1108818

PATIENT
  Age: 56 Year
  Sex: Female

DRUGS (2)
  1. CYCLOSPORINE [Interacting]
     Active Substance: CYCLOSPORINE
     Indication: Immunosuppressant drug therapy
     Dosage: UNK
     Route: 065
  2. COLCHICINE [Interacting]
     Active Substance: COLCHICINE
     Indication: Product used for unknown indication
     Dosage: 1.2 MILLIGRAM, QD, FOR 2 WEEKS
     Route: 065

REACTIONS (15)
  - Toxicity to various agents [Recovering/Resolving]
  - Labelled drug-drug interaction medication error [Recovering/Resolving]
  - Diarrhoea [Recovering/Resolving]
  - Vomiting [Recovering/Resolving]
  - Neutropenia [Recovering/Resolving]
  - Thrombocytopenia [Recovering/Resolving]
  - Thyroid disorder [Recovering/Resolving]
  - Rhabdomyolysis [Recovering/Resolving]
  - Hepatic failure [Recovering/Resolving]
  - Renal failure [Recovering/Resolving]
  - Leukocytosis [Recovering/Resolving]
  - Rebound effect [Recovering/Resolving]
  - Alopecia [Recovering/Resolving]
  - Muscular weakness [Recovering/Resolving]
  - Accidental exposure to product [Recovering/Resolving]
